FAERS Safety Report 12037604 (Version 1)
Quarter: 2016Q1

REPORT INFORMATION
  Report Type: Spontaneous
  Country: US (occurrence: None)
  Receive Date: 20160205
  Receipt Date: 20160205
  Transmission Date: 20160526
  Serious: No
  Sender: FDA-Public Use
  Company Number: None

PATIENT
  Sex: Female

DRUGS (1)
  1. CYCLOPHOSPHAMIDE 50 MG UNKNOWN [Suspect]
     Active Substance: CYCLOPHOSPHAMIDE
     Indication: PLASMA CELL MYELOMA
     Dosage: 10 CAPS FOR 3 WEEKS/ 1 WEEK OFF ONCE WEEKL ORAL
     Route: 048
     Dates: start: 20151230

REACTIONS (1)
  - Cerebrovascular accident [None]
